FAERS Safety Report 9251005 (Version 1)
Quarter: 2013Q1

REPORT INFORMATION
  Report Type: Spontaneous
  Country: US (occurrence: None)
  Receive Date: 20130305
  Receipt Date: 20130305
  Transmission Date: 20140127
  Serious: Yes (Other)
  Sender: FDA-Public Use
  Company Number: 163-21880-12083466

PATIENT
  Age: 61 Year
  Sex: Male
  Weight: 74.84 kg

DRUGS (11)
  1. REVLIMID [Suspect]
     Indication: PLASMA CELL MYELOMA
     Dosage: 21 IN 21 D
     Route: 048
     Dates: start: 20080808
  2. AMBIEN (ZOLPIDEM TARTRATE) [Concomitant]
  3. AQUA LUBE (CARMELLOSE SODIUM) [Concomitant]
  4. ATRIPLA (ATRIPLA) [Concomitant]
  5. BIAXIN (CLARITHROMYCIN) [Concomitant]
  6. CIALIS (TADALAFIL) [Concomitant]
  7. COUMADIN (WARFARIN SODIUM) [Concomitant]
  8. DECADRON (DEXAMETHASONE) [Concomitant]
  9. LOVENOX (HEPARIN-FRACTION, SODIUM SALT) [Concomitant]
  10. VITAMINS [Concomitant]
  11. ZOMETA (ZOLEDRONIC ACID) [Concomitant]

REACTIONS (2)
  - Plasma cell myeloma recurrent [None]
  - Drug ineffective [None]
